FAERS Safety Report 6804991-0 (Version None)
Quarter: 2010Q2

REPORT INFORMATION
  Report Type: 
  Country: None (occurrence: None)
  Receive Date: 20100628
  Receipt Date: 20070720
  Transmission Date: 20101027
  Serious: No
  Sender: FDA-Public Use
  Company Number: US-PFIZER INC-2007061074

PATIENT
  Sex: Female
  Weight: 68 kg

DRUGS (6)
  1. CADUET [Suspect]
     Indication: HYPERTENSION
     Dosage: 5/10MG
     Dates: start: 20070719
  2. SYNTHROID [Concomitant]
  3. VITAMINS [Concomitant]
  4. CALCIUM CARBONATE [Concomitant]
  5. FISH OIL [Concomitant]
  6. OPHTHALMOLOGICALS [Concomitant]

REACTIONS (1)
  - HEADACHE [None]
